FAERS Safety Report 5073834-0 (Version None)
Quarter: 2006Q3

REPORT INFORMATION
  Report Type: 
  Country: None (occurrence: None)
  Receive Date: 20060808
  Receipt Date: 20050602
  Transmission Date: 20061208
  Serious: No
  Sender: FDA-Public Use
  Company Number: US-AMGEN-KDL137159

PATIENT
  Sex: Female
  Weight: 86.3 kg

DRUGS (12)
  1. PROCRIT [Suspect]
     Indication: ANAEMIA OF MALIGNANT DISEASE
     Route: 058
     Dates: start: 20050517
  2. LEXAPRO [Concomitant]
  3. CLONAZEPAM [Concomitant]
  4. SYNTHROID [Concomitant]
  5. PROTONIX [Concomitant]
  6. METHADONE HCL [Concomitant]
  7. TIAZAC [Concomitant]
  8. TORSEMIDE [Concomitant]
  9. COUMADIN [Concomitant]
  10. CALCITRIOL [Concomitant]
  11. POTASSIUM [Concomitant]
  12. RADIATION THERAPY [Concomitant]

REACTIONS (1)
  - WHITE BLOOD CELL COUNT INCREASED [None]
